FAERS Safety Report 24566323 (Version 1)
Quarter: 2024Q4

REPORT INFORMATION
  Report Type: Spontaneous
  Country: US (occurrence: US)
  Receive Date: 20241030
  Receipt Date: 20241030
  Transmission Date: 20250114
  Serious: No
  Sender: IPSEN BIOPHARMACEUTICALS, INC.
  Company Number: US-IPSEN Group, Research and Development-2024-21356

PATIENT
  Age: 71 Year
  Sex: Female

DRUGS (1)
  1. DYSPORT [Suspect]
     Active Substance: ABOBOTULINUMTOXINA
     Indication: Hemiplegia
     Dosage: EVERY 3 MONTHS, NDC: 15054050001
     Route: 030

REACTIONS (2)
  - Muscle spasticity [Unknown]
  - Product dose omission issue [Unknown]
